FAERS Safety Report 8717220 (Version 2)
Quarter: 2012Q4

REPORT INFORMATION
  Report Type: 
  Country: US (occurrence: US)
  Receive Date: 20120810
  Receipt Date: 20120831
  Transmission Date: 20130627
  Serious: Yes (Life-Threatening, Hospitalization, Other)
  Sender: FDA-Public Use
  Company Number: PHEH2012US015529

PATIENT
  Age: 49 Year
  Sex: Male
  Weight: 87.08 kg

DRUGS (3)
  1. CLOZARIL [Suspect]
     Indication: SCHIZOPHRENIA
     Dosage: 300mg AM, 100mg PM, 300mg HS
     Route: 048
  2. ATIVAN [Concomitant]
     Indication: ANXIETY
     Dosage: 1 mg, PRN
     Dates: start: 20081014
  3. LIPITOR [Concomitant]
     Indication: HYPERLIPIDAEMIA
     Dosage: 10 mg, daily
     Route: 048
     Dates: start: 20080226

REACTIONS (7)
  - Brain injury [Recovering/Resolving]
  - Cerebral haematoma [Unknown]
  - Cerebral haemorrhage [Unknown]
  - Disorientation [Unknown]
  - Cognitive disorder [Recovering/Resolving]
  - Neutrophil count decreased [Unknown]
  - Lymphocyte count decreased [Unknown]
